FAERS Safety Report 8163355-0 (Version None)
Quarter: 2012Q1

REPORT INFORMATION
  Report Type: 
  Country: None (occurrence: None)
  Receive Date: 20120221
  Receipt Date: 20120213
  Transmission Date: 20120608
  Serious: Yes (Hospitalization)
  Sender: FDA-Public Use
  Company Number: 2012SP008772

PATIENT
  Age: 30 Year
  Sex: Female

DRUGS (3)
  1. SOLIAN [Concomitant]
  2. SYCREST (ASENAPINE /05706901/) [Suspect]
     Indication: SCHIZOAFFECTIVE DISORDER
     Dosage: 10 MG;BID;PO
     Route: 048
     Dates: start: 20120101, end: 20120201
  3. OLANZAPINE [Concomitant]

REACTIONS (3)
  - DRUG INEFFECTIVE [None]
  - MANIA [None]
  - TREATMENT NONCOMPLIANCE [None]
